FAERS Safety Report 7339993-1 (Version None)
Quarter: 2011Q1

REPORT INFORMATION
  Report Type: 
  Country: None (occurrence: None)
  Receive Date: 20110309
  Receipt Date: 20110304
  Transmission Date: 20110831
  Serious: Yes (Hospitalization, Other)
  Sender: FDA-Public Use
  Company Number: US-PFIZER INC-2010165152

PATIENT
  Sex: Male

DRUGS (4)
  1. MOTRIN [Concomitant]
     Indication: ANALGESIC THERAPY
     Dosage: UNK
     Dates: start: 19760101
  2. CHANTIX [Suspect]
     Indication: SMOKING CESSATION THERAPY
     Dosage: UNK
     Dates: start: 20081101, end: 20090401
  3. KLONOPIN [Concomitant]
     Indication: RESTLESS LEGS SYNDROME
     Dosage: UNK
     Dates: start: 19880101
  4. SPIRIVA [Concomitant]
     Indication: ASBESTOSIS
     Dosage: UNK
     Dates: start: 20080101

REACTIONS (4)
  - SUICIDE ATTEMPT [None]
  - AGGRESSION [None]
  - ANXIETY [None]
  - DEPRESSION [None]
